FAERS Safety Report 23136085 (Version 4)
Quarter: 2023Q4

REPORT INFORMATION
  Report Type: Spontaneous
  Country: JP (occurrence: JP)
  Receive Date: 20231102
  Receipt Date: 20231226
  Transmission Date: 20240110
  Serious: Yes (Other)
  Sender: FDA-Public Use
  Company Number: JP-ABBVIE-5467374

PATIENT
  Age: 78 Year
  Sex: Female

DRUGS (3)
  1. VENCLEXTA [Suspect]
     Active Substance: VENETOCLAX
     Indication: Chloroma
     Dosage: 10 MG, DURATION TEXT: 6 COURSES
     Route: 048
  2. ITRACONAZOLE [Concomitant]
     Active Substance: ITRACONAZOLE
     Indication: Infection prophylaxis
     Dosage: 10 MILLIGRAM
     Route: 065
  3. AZACITIDINE [Concomitant]
     Active Substance: AZACITIDINE
     Indication: Chloroma
     Route: 065

REACTIONS (2)
  - Myelosuppression [Recovered/Resolved]
  - Off label use [Unknown]
